FAERS Safety Report 25104745 (Version 1)
Quarter: 2025Q1

REPORT INFORMATION
  Report Type: Spontaneous
  Country: GB (occurrence: GB)
  Receive Date: 20250321
  Receipt Date: 20250321
  Transmission Date: 20250408
  Serious: Yes (Other)
  Sender: AUROBINDO
  Company Number: GB-MHRA-MED-202503061627177410-KGZCW

PATIENT
  Age: 62 Year
  Sex: Male
  Weight: 104 kg

DRUGS (5)
  1. FINASTERIDE [Suspect]
     Active Substance: FINASTERIDE
     Indication: Adverse drug reaction
     Dosage: 5 MILLIGRAM, ONCE A DAY (5MG PER DAY)
     Route: 065
  2. WARFARIN [Concomitant]
     Active Substance: WARFARIN
     Indication: Deep vein thrombosis
     Route: 065
  3. AMLODIPINE [Concomitant]
     Active Substance: AMLODIPINE BESYLATE
     Indication: Adverse drug reaction
     Route: 065
  4. RAMIPRIL [Concomitant]
     Active Substance: RAMIPRIL
     Indication: Product used for unknown indication
     Route: 065
  5. EZETIMIBE [Concomitant]
     Active Substance: EZETIMIBE
     Indication: Adverse drug reaction
     Route: 065

REACTIONS (5)
  - Loss of libido [Not Recovered/Not Resolved]
  - Erectile dysfunction [Not Recovered/Not Resolved]
  - Retrograde ejaculation [Not Recovered/Not Resolved]
  - Depression [Not Recovered/Not Resolved]
  - Suicidal ideation [Not Recovered/Not Resolved]

NARRATIVE: CASE EVENT DATE: 20180101
